FAERS Safety Report 11138684 (Version 2)
Quarter: 2015Q3

REPORT INFORMATION
  Report Type: Spontaneous
  Country: US (occurrence: US)
  Receive Date: 20150527
  Receipt Date: 20150707
  Transmission Date: 20151125
  Serious: No
  Sender: FDA-Public Use
  Company Number: US-009507513-1505USA011176

PATIENT
  Age: 24 Year
  Sex: Female
  Weight: 78.91 kg

DRUGS (1)
  1. NEXPLANON [Suspect]
     Active Substance: ETONOGESTREL
     Indication: CONTRACEPTION
     Dosage: 1 IMPLANT/3 YEARS
     Route: 059
     Dates: start: 20150211

REACTIONS (3)
  - Vaginal haemorrhage [Not Recovered/Not Resolved]
  - Abdominal pain [Not Recovered/Not Resolved]
  - Amenorrhoea [Unknown]

NARRATIVE: CASE EVENT DATE: 20150211
